FAERS Safety Report 14092091 (Version 17)
Quarter: 2018Q3

REPORT INFORMATION
  Report Type: Spontaneous
  Country: US (occurrence: US)
  Receive Date: 20171016
  Receipt Date: 20180913
  Transmission Date: 20181010
  Serious: Yes (Other)
  Sender: FDA-Public Use
  Company Number: US-PFIZER INC-2017444347

PATIENT
  Age: 82 Year
  Sex: Female
  Weight: 60.77 kg

DRUGS (6)
  1. IBRANCE [Suspect]
     Active Substance: PALBOCICLIB
     Dosage: 75 MG, CYCLIC (75 MG X 21)
     Route: 048
  2. IBRANCE [Suspect]
     Active Substance: PALBOCICLIB
     Dosage: 75 MG, CYCLIC (DAILY FOR 21 DAYS, TAKEN WITH FOOD DAILY ON DAYS 1?21 EVERY 28DAYS)
     Route: 048
     Dates: end: 201710
  3. IBRANCE [Suspect]
     Active Substance: PALBOCICLIB
     Dosage: 75 MG, CYCLIC (ONCE A DAY FOR 3 WEEKS AND OFF 1 WEEK)
     Route: 048
     Dates: end: 20180403
  4. FASLODEX [Suspect]
     Active Substance: FULVESTRANT
     Indication: BREAST CANCER METASTATIC
     Dosage: 2 DF, CYCLIC (2 NURSES EVERY 28 DAYS AND 2 INJECTIONS AT A TIME.)
  5. IBRANCE [Suspect]
     Active Substance: PALBOCICLIB
     Indication: BREAST CANCER METASTATIC
     Dosage: 125 MG, UNK
     Route: 048
     Dates: start: 20170103
  6. IBRANCE [Suspect]
     Active Substance: PALBOCICLIB
     Dosage: 100 MG, UNK
     Route: 048

REACTIONS (18)
  - Impaired driving ability [Not Recovered/Not Resolved]
  - Arthralgia [Not Recovered/Not Resolved]
  - Infection susceptibility increased [Unknown]
  - Blood count abnormal [Not Recovered/Not Resolved]
  - Ankle fracture [Recovering/Resolving]
  - Drug dose omission [Unknown]
  - Erythema [Unknown]
  - Vitamin B12 decreased [Unknown]
  - Fall [Unknown]
  - Cellulitis [Recovered/Resolved]
  - Urinary tract infection [Unknown]
  - Peripheral swelling [Unknown]
  - Foot fracture [Unknown]
  - White blood cell count decreased [Unknown]
  - Neoplasm progression [Unknown]
  - Back disorder [Unknown]
  - Fatigue [Unknown]
  - Throat irritation [Unknown]

NARRATIVE: CASE EVENT DATE: 20171007
